FAERS Safety Report 6561861-3 (Version None)
Quarter: 2010Q1

REPORT INFORMATION
  Report Type: 
  Country: None (occurrence: None)
  Receive Date: 20100130
  Receipt Date: 20091030
  Transmission Date: 20100710
  Serious: No
  Sender: FDA-Public Use
  Company Number: US-ABBOTT-09P-163-0606148-00

PATIENT
  Sex: Male
  Weight: 148.46 kg

DRUGS (3)
  1. HUMIRA [Suspect]
     Indication: PSORIASIS
     Dosage: DAY 1
     Dates: start: 20091009
  2. HUMIRA [Suspect]
     Dosage: DAY 8
     Dates: start: 20091026
  3. HUMIRA [Suspect]
     Dates: start: 20091030

REACTIONS (1)
  - LOCALISED INFECTION [None]
